FAERS Safety Report 8368341-3 (Version None)
Quarter: 2012Q2

REPORT INFORMATION
  Report Type: 
  Country: None (occurrence: None)
  Receive Date: 20120517
  Receipt Date: 20120508
  Transmission Date: 20120825
  Serious: Yes (Hospitalization)
  Sender: FDA-Public Use
  Company Number: CO-ELI_LILLY_AND_COMPANY-CO201203006214

PATIENT
  Sex: Female

DRUGS (5)
  1. CARVEDILOL [Concomitant]
  2. CALCIUM +VIT D [Concomitant]
     Indication: SUPPLEMENTATION THERAPY
  3. FORTEO [Suspect]
     Indication: OSTEOPOROSIS
     Dosage: 20 UG, QD
     Route: 058
     Dates: start: 20110401
  4. LIPITOR [Concomitant]
  5. DIOVAN [Concomitant]

REACTIONS (1)
  - CHRONIC OBSTRUCTIVE PULMONARY DISEASE [None]
